FAERS Safety Report 9441227 (Version 1)
Quarter: 2013Q3

REPORT INFORMATION
  Report Type: Spontaneous
  Country: IT (occurrence: None)
  Receive Date: 20130801
  Receipt Date: 20130801
  Transmission Date: 20140515
  Serious: Yes (Other)
  Sender: FDA-Public Use
  Company Number: AUR-APL-2013-03951

PATIENT
  Age: 53 Year
  Sex: Male

DRUGS (3)
  1. METFORMIN (METFORMIN) [Suspect]
     Indication: HYPERGLYCAEMIA
     Route: 048
     Dates: start: 20120901, end: 20121201
  2. TRIATEC (PANADEINECO) [Concomitant]
  3. FENOFIBRATE (FENOFIBRATE) (FENOFIBRATE) [Concomitant]

REACTIONS (2)
  - Erythema [None]
  - Quality of life decreased [None]
